FAERS Safety Report 8220119-7 (Version None)
Quarter: 2012Q1

REPORT INFORMATION
  Report Type: 
  Country: None (occurrence: None)
  Receive Date: 20120320
  Receipt Date: 20120312
  Transmission Date: 20120608
  Serious: No
  Sender: FDA-Public Use
  Company Number: US-BIOGENIDEC-2012BI008771

PATIENT
  Sex: Female

DRUGS (4)
  1. AVONEX [Suspect]
     Indication: MULTIPLE SCLEROSIS
     Route: 030
     Dates: start: 20010101, end: 20030101
  2. ARICEPT [Concomitant]
     Indication: MEMORY IMPAIRMENT
  3. AVONEX [Suspect]
     Route: 030
     Dates: start: 20030101
  4. NAMENDA [Concomitant]
     Indication: MEMORY IMPAIRMENT

REACTIONS (4)
  - HEADACHE [None]
  - INCOHERENT [None]
  - NAUSEA [None]
  - CATARACT [None]
